FAERS Safety Report 22173490 (Version 3)
Quarter: 2023Q2

REPORT INFORMATION
  Report Type: Spontaneous
  Country: CA (occurrence: CA)
  Receive Date: 20230404
  Receipt Date: 20230525
  Transmission Date: 20230722
  Serious: Yes (Other)
  Sender: FDA-Public Use
  Company Number: CA-PFIZER INC-202300139969

PATIENT
  Age: 43 Year
  Sex: Male
  Weight: 60 kg

DRUGS (3)
  1. XELJANZ [Suspect]
     Active Substance: TOFACITINIB CITRATE
     Indication: Colitis ulcerative
     Dosage: 1 DF, 2X/DAY
     Route: 048
     Dates: start: 20030101
  2. XELJANZ [Suspect]
     Active Substance: TOFACITINIB CITRATE
     Dosage: 5 MG, DAILY
     Route: 048
  3. XELJANZ [Suspect]
     Active Substance: TOFACITINIB CITRATE
     Dosage: 5 MG, 2X/DAY
     Route: 048
     Dates: end: 202304

REACTIONS (7)
  - Sepsis [Not Recovered/Not Resolved]
  - Defaecation urgency [Unknown]
  - Frequent bowel movements [Unknown]
  - Burning sensation [Unknown]
  - Pruritus [Unknown]
  - Dysuria [Not Recovered/Not Resolved]
  - Off label use [Unknown]

NARRATIVE: CASE EVENT DATE: 20230101
